FAERS Safety Report 18380202 (Version 1)
Quarter: 2020Q4

REPORT INFORMATION
  Report Type: Spontaneous
  Country: US (occurrence: US)
  Receive Date: 20201013
  Receipt Date: 20201013
  Transmission Date: 20210114
  Serious: No
  Sender: FDA-Public Use
  Company Number: US-AERIE-2020-001619

PATIENT
  Age: 29 Year
  Sex: Male

DRUGS (9)
  1. DORZOLAMIDE + TIMOLOL [Concomitant]
     Indication: INTRAOCULAR PRESSURE INCREASED
     Dosage: UNK, BID
     Route: 047
  2. RHOPRESSA [Suspect]
     Active Substance: NETARSUDIL MESYLATE
     Indication: GLAUCOMA
     Dosage: UNK, QD, OS
     Route: 047
  3. BRIMONIDINE [Concomitant]
     Active Substance: BRIMONIDINE TARTRATE
     Indication: INTRAOCULAR PRESSURE INCREASED
  4. LATANOPROST. [Concomitant]
     Active Substance: LATANOPROST
     Indication: INTRAOCULAR PRESSURE INCREASED
  5. RHOPRESSA [Suspect]
     Active Substance: NETARSUDIL MESYLATE
     Indication: INTRAOCULAR PRESSURE INCREASED
  6. PREDNISOLONE ACETATE. [Concomitant]
     Active Substance: PREDNISOLONE ACETATE
     Indication: POST PROCEDURAL INFLAMMATION
     Dosage: UNK, BID
  7. DORZOLAMIDE + TIMOLOL [Concomitant]
     Indication: VISUAL ACUITY REDUCED
  8. LATANOPROST. [Concomitant]
     Active Substance: LATANOPROST
     Indication: VISUAL ACUITY REDUCED
     Dosage: UNK
     Route: 047
  9. BRIMONIDINE [Concomitant]
     Active Substance: BRIMONIDINE TARTRATE
     Indication: VISUAL ACUITY REDUCED
     Dosage: UNK, BID
     Route: 047

REACTIONS (6)
  - Off label use [Unknown]
  - Eye irritation [Unknown]
  - Keratopathy [Recovered/Resolved]
  - Conjunctival hyperaemia [Recovered/Resolved]
  - Corneal oedema [Recovered/Resolved]
  - Visual acuity reduced [Unknown]
